FAERS Safety Report 7788018-2 (Version None)
Quarter: 2011Q3

REPORT INFORMATION
  Report Type: 
  Country: None (occurrence: None)
  Receive Date: 20110927
  Receipt Date: 20110912
  Transmission Date: 20111222
  Serious: Yes (Other)
  Sender: FDA-Public Use
  Company Number: JPI-P-015872

PATIENT
  Age: 73 Year
  Sex: Male
  Weight: 68.0396 kg

DRUGS (14)
  1. SERTRALINE HYDROCHLORIDE [Concomitant]
  2. DICLOFENAC SODIUM [Concomitant]
  3. LEVOTHYROXINE SODIUM [Concomitant]
  4. SIMVASTATIN [Concomitant]
  5. ASPIRIN [Concomitant]
  6. METHYLPHENIDATE [Concomitant]
  7. XYREM [Suspect]
     Indication: SLEEP DISORDER
     Dosage: 6 GM (3 GM,2 IN 1 D),ORAL
     Route: 048
     Dates: start: 20020930
  8. XYREM [Suspect]
     Indication: SLEEP PARALYSIS
     Dosage: 6 GM (3 GM,2 IN 1 D),ORAL
     Route: 048
     Dates: start: 20020930
  9. XYREM [Suspect]
     Indication: HYPNAGOGIC HALLUCINATION
     Dosage: 6 GM (3 GM,2 IN 1 D),ORAL
     Route: 048
     Dates: start: 20020930
  10. XYREM [Suspect]
     Indication: CATAPLEXY
     Dosage: 6 GM (3 GM,2 IN 1 D),ORAL
     Route: 048
     Dates: start: 20020930
  11. TERAZOSIN HCL [Concomitant]
  12. BENAZEPRIL HYDROCHLORIDE [Concomitant]
  13. DONEPEZIL HCL [Concomitant]
  14. XYREM [Suspect]

REACTIONS (5)
  - DYSSTASIA [None]
  - EYE INJURY [None]
  - FALL [None]
  - FEMUR FRACTURE [None]
  - BALANCE DISORDER [None]
